FAERS Safety Report 25578334 (Version 1)
Quarter: 2025Q3

REPORT INFORMATION
  Report Type: Spontaneous
  Country: US (occurrence: US)
  Receive Date: 20250718
  Receipt Date: 20250718
  Transmission Date: 20251020
  Serious: No
  Sender: PFIZER
  Company Number: US-PFIZER INC-PV202500085716

PATIENT

DRUGS (9)
  1. PROTONIX [Suspect]
     Active Substance: PANTOPRAZOLE SODIUM
  2. UPTRAVI [Suspect]
     Active Substance: SELEXIPAG
  3. AMBRISENTAN [Suspect]
     Active Substance: AMBRISENTAN
  4. JARDIANCE [Suspect]
     Active Substance: EMPAGLIFLOZIN
  5. TORSEMIDE [Suspect]
     Active Substance: TORSEMIDE
  6. SILDENAFIL [Suspect]
     Active Substance: SILDENAFIL
  7. MOUNJARO [Suspect]
     Active Substance: TIRZEPATIDE
  8. LISINOPRIL [Suspect]
     Active Substance: LISINOPRIL
  9. BISOPROLOL [Suspect]
     Active Substance: BISOPROLOL

REACTIONS (1)
  - Drug ineffective [Unknown]
